FAERS Safety Report 23267333 (Version 1)
Quarter: 2023Q4

REPORT INFORMATION
  Report Type: Spontaneous
  Country: JP (occurrence: JP)
  Receive Date: 20231206
  Receipt Date: 20231206
  Transmission Date: 20240110
  Serious: Yes (Death, Other)
  Sender: FDA-Public Use
  Company Number: JP-JNJFOC-20231206261

PATIENT
  Age: 46 Year
  Sex: Male

DRUGS (16)
  1. OPSUMIT [Suspect]
     Active Substance: MACITENTAN
     Indication: Pulmonary hypertension
     Route: 048
  2. TADALAFIL [Suspect]
     Active Substance: TADALAFIL
     Indication: Pulmonary hypertension
     Route: 048
  3. TADALAFIL [Suspect]
     Active Substance: TADALAFIL
     Dosage: 20-40MG
     Route: 048
  4. AMPICILLIN SODIUM\SULBACTAM SODIUM [Concomitant]
     Active Substance: AMPICILLIN SODIUM\SULBACTAM SODIUM
     Dosage: 3G,Q8HR
     Route: 065
  5. FEBUXOSTAT [Concomitant]
     Active Substance: FEBUXOSTAT
     Dosage: DOSE UNKNOWN
     Route: 048
  6. ASPIRIN [Concomitant]
     Active Substance: ASPIRIN
     Dosage: DOSE UNKNOWN
     Route: 065
  7. AZOSEMIDE [Concomitant]
     Active Substance: AZOSEMIDE
     Dosage: DOSE UNKNOWN
     Route: 048
  8. DOBUTAMINE [Concomitant]
     Active Substance: DOBUTAMINE HYDROCHLORIDE
     Indication: Anal incontinence
     Dosage: 4-7GAMMA
     Route: 042
  9. FUROSEMIDE [Concomitant]
     Active Substance: FUROSEMIDE
     Dosage: 20-40MG
  10. SAMSCA [Concomitant]
     Active Substance: TOLVAPTAN
     Dosage: 3.75-7.5MG
     Route: 048
  11. PREDONINE [Concomitant]
     Active Substance: PREDNISOLONE
     Dosage: DOSE UNKNOWN
  12. ATORVASTATIN [Concomitant]
     Active Substance: ATORVASTATIN
     Dosage: DOSE UNKNOWN
     Route: 048
  13. ENALAPRIL [Concomitant]
     Active Substance: ENALAPRIL
     Dosage: DOSE UNKNOWN
     Route: 048
  14. LANSOPRAZOLE [Concomitant]
     Active Substance: LANSOPRAZOLE
     Dosage: DOSE UNKNOWN
  15. SITAGLIPTIN PHOSPHATE [Concomitant]
     Active Substance: SITAGLIPTIN PHOSPHATE
     Dosage: DOSE UNKNOWN
     Route: 048
  16. EDOXABAN TOSYLATE [Concomitant]
     Active Substance: EDOXABAN TOSYLATE
     Dosage: DOSE UNKNOWN
     Route: 048

REACTIONS (3)
  - Bradycardia [Fatal]
  - Loss of consciousness [Unknown]
  - Dyspnoea [Unknown]
